FAERS Safety Report 6918636-2 (Version None)
Quarter: 2010Q3

REPORT INFORMATION
  Report Type: 
  Country: None (occurrence: None)
  Receive Date: 20100811
  Receipt Date: 20100803
  Transmission Date: 20110219
  Serious: Yes (Hospitalization, Other)
  Sender: FDA-Public Use
  Company Number: US-PFIZER INC-2010043747

PATIENT
  Sex: Male

DRUGS (5)
  1. CHANTIX [Suspect]
     Indication: SMOKING CESSATION THERAPY
     Dosage: UNK
     Dates: start: 20061019, end: 20080101
  2. FLUCONAZOLE [Concomitant]
     Indication: ANTIFUNGAL TREATMENT
     Dosage: UNK
     Dates: start: 20060101, end: 20090101
  3. METHYLPREDNISOLONE [Concomitant]
     Dosage: UNK
     Dates: start: 20050101, end: 20090101
  4. HYDROXYZINE [Concomitant]
     Indication: ANTIALLERGIC THERAPY
     Dosage: UNK
     Dates: start: 20060101, end: 20100101
  5. AVELOX [Concomitant]
     Indication: ANTIBIOTIC THERAPY
     Dosage: UNK
     Dates: start: 20050101, end: 20090101

REACTIONS (4)
  - CONVULSION [None]
  - HEADACHE [None]
  - LOSS OF CONSCIOUSNESS [None]
  - MENTAL DISORDER [None]
